FAERS Safety Report 18535132 (Version 1)
Quarter: 2020Q4

REPORT INFORMATION
  Report Type: Spontaneous
  Country: US (occurrence: US)
  Receive Date: 20201123
  Receipt Date: 20201123
  Transmission Date: 20210114
  Serious: Yes (Hospitalization, Other)
  Sender: FDA-Public Use
  Company Number: US-PURDUE-USA-2020-0178579

PATIENT
  Sex: Male

DRUGS (2)
  1. HYDROCODONE BITARTRATE AND ACETAMINOPHEN [Suspect]
     Active Substance: ACETAMINOPHEN\HYDROCODONE BITARTRATE
     Indication: PRODUCT USED FOR UNKNOWN INDICATION
     Dosage: UNK
     Route: 048
  2. OXYCONTIN [Suspect]
     Active Substance: OXYCODONE HYDROCHLORIDE
     Indication: PRODUCT USED FOR UNKNOWN INDICATION
     Dosage: UNK
     Route: 048

REACTIONS (19)
  - Drug withdrawal syndrome [Unknown]
  - Atrial fibrillation [Unknown]
  - Endocrine ophthalmopathy [Unknown]
  - Bruxism [Unknown]
  - Weight increased [Unknown]
  - Diarrhoea [Unknown]
  - Drug dependence [Unknown]
  - Hospitalisation [Unknown]
  - Eyelid operation [Unknown]
  - Eye muscle operation [Unknown]
  - Cardiac pacemaker insertion [Unknown]
  - Loose tooth [Unknown]
  - Weight decreased [Unknown]
  - Surgery [Unknown]
  - Vomiting [Unknown]
  - Stress [Unknown]
  - Anxiety [Unknown]
  - Dyspnoea [Unknown]
  - Thyroid hormones increased [Unknown]
